FAERS Safety Report 11057558 (Version 1)
Quarter: 2015Q2

REPORT INFORMATION
  Report Type: Spontaneous
  Country: TR (occurrence: TR)
  Receive Date: 20150422
  Receipt Date: 20150422
  Transmission Date: 20150821
  Serious: Yes (Hospitalization)
  Sender: FDA-Public Use
  Company Number: PHHY2015TR046940

PATIENT
  Age: 28 Year
  Sex: Male

DRUGS (1)
  1. TRAMADOL [Suspect]
     Active Substance: TRAMADOL
     Indication: PAIN
     Dosage: 100 MG, QD
     Route: 065

REACTIONS (12)
  - Mania [Recovered/Resolved]
  - Agitation [Recovered/Resolved]
  - Sexually inappropriate behaviour [Recovered/Resolved]
  - Speech disorder [Recovered/Resolved]
  - Psychomotor hyperactivity [Recovered/Resolved]
  - Waxy flexibility [Recovered/Resolved]
  - Hostility [Recovered/Resolved]
  - Tachyphrenia [Recovered/Resolved]
  - Grandiosity [Recovered/Resolved]
  - Irritability [Recovered/Resolved]
  - Energy increased [Recovered/Resolved]
  - Insomnia [Recovered/Resolved]
